FAERS Safety Report 25344348 (Version 1)
Quarter: 2025Q2

REPORT INFORMATION
  Report Type: Spontaneous
  Country: US (occurrence: US)
  Receive Date: 20250521
  Receipt Date: 20250521
  Transmission Date: 20250717
  Serious: No
  Sender: BAUSCH AND LOMB
  Company Number: US-BAUSCHBL-2025BNL008690

PATIENT
  Sex: Male

DRUGS (2)
  1. LUMIFY [Suspect]
     Active Substance: BRIMONIDINE TARTRATE
     Indication: Product used for unknown indication
     Route: 047
  2. LUMIFY [Suspect]
     Active Substance: BRIMONIDINE TARTRATE

REACTIONS (8)
  - Migraine [Unknown]
  - Burning sensation [Unknown]
  - Purulent discharge [Unknown]
  - Vision blurred [Unknown]
  - Eye discharge [Unknown]
  - Eye irritation [Unknown]
  - Ocular hyperaemia [Unknown]
  - Product quality issue [Unknown]

NARRATIVE: CASE EVENT DATE: 20250401
